FAERS Safety Report 25588420 (Version 1)
Quarter: 2025Q3

REPORT INFORMATION
  Report Type: Spontaneous
  Country: NG (occurrence: NG)
  Receive Date: 20250722
  Receipt Date: 20250722
  Transmission Date: 20251021
  Serious: Yes (Hospitalization, Other)
  Sender: Unknown Manufacturer
  Company Number: NG-STRIDES ARCOLAB LIMITED-2025OS000171

PATIENT
  Age: 21 Year
  Sex: Male

DRUGS (5)
  1. IBUPROFEN [Suspect]
     Active Substance: IBUPROFEN
     Indication: Pain
     Route: 065
  2. DICLOFENAC [Suspect]
     Active Substance: DICLOFENAC
     Indication: Pain
     Route: 065
  3. PENTAZOCINE [Concomitant]
     Active Substance: PENTAZOCINE
     Indication: Pain
     Route: 065
  4. FOLIC ACID [Concomitant]
     Active Substance: FOLIC ACID
     Indication: Product used for unknown indication
     Route: 065
  5. Astymin [Concomitant]
     Indication: Product used for unknown indication
     Route: 065

REACTIONS (3)
  - Peritonitis [Unknown]
  - Gastric perforation [None]
  - Ileal perforation [None]
